FAERS Safety Report 9351595 (Version 2)
Quarter: 2013Q4

REPORT INFORMATION
  Report Type: Spontaneous
  Country: DE (occurrence: DE)
  Receive Date: 20130617
  Receipt Date: 20131025
  Transmission Date: 20140711
  Serious: Yes (Other)
  Sender: FDA-Public Use
  Company Number: DE-JNJFOC-20130608957

PATIENT
  Age: 21 Year
  Sex: Female
  Weight: 56 kg

DRUGS (2)
  1. XARELTO [Suspect]
     Indication: FACTOR V LEIDEN MUTATION
     Route: 048
     Dates: start: 20130315, end: 201306
  2. DIENOGEST/ETHINYLESTRADIOL [Concomitant]
     Route: 065

REACTIONS (2)
  - Fluid retention [Unknown]
  - Skin oedema [Unknown]
